FAERS Safety Report 9861761 (Version 1)
Quarter: 2014Q1

REPORT INFORMATION
  Report Type: Spontaneous
  Country: RO (occurrence: RO)
  Receive Date: 20140203
  Receipt Date: 20140203
  Transmission Date: 20141002
  Serious: Yes (Other)
  Sender: FDA-Public Use
  Company Number: RO-ACCORD-021645

PATIENT
  Age: 42 Year
  Sex: Male

DRUGS (7)
  1. MYCOPHENOLIC ACID [Suspect]
     Indication: IMMUNOSUPPRESSANT DRUG THERAPY
  2. OXALIPLATIN [Concomitant]
     Indication: CHEMOTHERAPY
     Dosage: 6 CYCLES OF CAPECITABINE AND OXALIPLATIN
  3. LAMIVUDINE [Concomitant]
     Indication: LIVER TRANSPLANT
  4. CAPECITABINE [Concomitant]
     Indication: CHEMOTHERAPY
     Dosage: 6 CYCLES OF CAPECITABINE AND OXALIPLATIN
  5. BASILIXIMAB [Suspect]
     Indication: IMMUNOSUPPRESSANT DRUG THERAPY
  6. IMMUNOGLOBULIN ANTIHEPATITIS B [Concomitant]
     Indication: LIVER TRANSPLANT
  7. SIROLIMUS [Suspect]
     Indication: IMMUNOSUPPRESSANT DRUG THERAPY

REACTIONS (2)
  - Retroperitoneal mass [Unknown]
  - Metastases to lung [Unknown]
